FAERS Safety Report 9404074 (Version 3)
Quarter: 2013Q3

REPORT INFORMATION
  Report Type: Spontaneous
  Country: US (occurrence: US)
  Receive Date: 20130717
  Receipt Date: 20130910
  Transmission Date: 20140515
  Serious: Yes (Other)
  Sender: FDA-Public Use
  Company Number: US-JNJFOC-20130515664

PATIENT
  Age: 50 Year
  Sex: Male
  Weight: 77.11 kg

DRUGS (16)
  1. INVOKANA [Suspect]
     Indication: TYPE 2 DIABETES MELLITUS
     Route: 048
     Dates: start: 20130426
  2. MIRAPEX [Concomitant]
     Indication: NEURALGIA
     Route: 048
  3. NAPROXEN [Concomitant]
     Indication: PAIN
     Route: 048
  4. SAW PALMETTO [Concomitant]
     Indication: PROSTATIC DISORDER
     Route: 048
  5. ROPINIROLE [Concomitant]
     Indication: MUSCULOSKELETAL DISORDER
     Route: 048
  6. OMEPRAZOLE [Concomitant]
     Indication: GASTROOESOPHAGEAL REFLUX DISEASE
     Route: 048
  7. NOVOLOG [Concomitant]
     Indication: DIABETES MELLITUS
     Route: 058
  8. LEVOTHYROXINE [Concomitant]
     Indication: THYROID DISORDER
     Route: 048
  9. METFORMIN [Concomitant]
     Indication: DIABETES MELLITUS
     Route: 048
  10. PERPHENAZINE [Concomitant]
     Indication: AFFECTIVE DISORDER
     Route: 048
  11. LEVEMIR [Concomitant]
     Indication: DIABETES MELLITUS
  12. HYDROCODONE [Concomitant]
     Indication: PAIN
  13. VITAMIN C [Concomitant]
     Indication: IMMUNE SYSTEM DISORDER
  14. CALCIUM+VITAMIN D [Concomitant]
     Indication: ROUTINE HEALTH MAINTENANCE
  15. FLOMAX [Concomitant]
     Indication: PROSTATIC DISORDER
     Route: 048
  16. BACTRIM [Concomitant]
     Indication: SKIN LESION
     Route: 048

REACTIONS (4)
  - Ageusia [Recovering/Resolving]
  - Dry mouth [Recovering/Resolving]
  - Dysgeusia [Recovering/Resolving]
  - Glossodynia [Recovering/Resolving]
